FAERS Safety Report 12907235 (Version 5)
Quarter: 2017Q4

REPORT INFORMATION
  Report Type: Report from Study
  Country: CO (occurrence: CO)
  Receive Date: 20161103
  Receipt Date: 20171218
  Transmission Date: 20180320
  Serious: Yes (Death, Hospitalization)
  Sender: FDA-Public Use
  Company Number: CO-ACTELION-A-CH2016-144540

PATIENT
  Age: 11 Year
  Sex: Female
  Weight: 45 kg

DRUGS (11)
  1. OPSUMIT [Suspect]
     Active Substance: MACITENTAN
     Indication: PULMONARY ARTERIAL HYPERTENSION
     Dosage: 10 MG, QD
     Route: 048
     Dates: start: 20160727, end: 20171024
  2. WARFARIN [Concomitant]
     Active Substance: WARFARIN
     Indication: PRODUCT USED FOR UNKNOWN INDICATION
     Dosage: 2.5 MG, UNK
     Route: 048
  3. LANSOPRAZOLE. [Concomitant]
     Active Substance: LANSOPRAZOLE
  4. FUROSEMIDE. [Concomitant]
     Active Substance: FUROSEMIDE
     Indication: PRODUCT USED FOR UNKNOWN INDICATION
  5. URSACOL [Concomitant]
     Active Substance: URSODIOL
  6. METILDIGOXIN [Concomitant]
     Active Substance: METILDIGOXIN
     Indication: CARDIAC DISORDER
     Dosage: 0.1 MG, QD
     Route: 048
  7. OMEPRAZOL [Concomitant]
     Active Substance: OMEPRAZOLE
     Indication: PRODUCT USED FOR UNKNOWN INDICATION
     Dosage: 20 MG, QD
     Route: 048
  8. NIFEDIPINE. [Concomitant]
     Active Substance: NIFEDIPINE
     Indication: CARDIAC DISORDER
     Dosage: 5 MG, Q12HRS
     Route: 048
  9. OPSUMIT [Suspect]
     Active Substance: MACITENTAN
     Dosage: 10 MG, QD
     Route: 048
     Dates: start: 20160615, end: 20160704
  10. SILDENAFIL. [Concomitant]
     Active Substance: SILDENAFIL
     Indication: PULMONARY ARTERIAL HYPERTENSION
     Dosage: 50 MG, TID
     Route: 048
     Dates: start: 2005
  11. ILOPROST. [Concomitant]
     Active Substance: ILOPROST

REACTIONS (15)
  - Liver injury [Recovered/Resolved]
  - Cardiac arrest [Fatal]
  - Hepatomegaly [Recovered/Resolved]
  - Ovarian rupture [Fatal]
  - Ovarian haemorrhage [Fatal]
  - Abdominal pain [Unknown]
  - Packed red blood cell transfusion [Fatal]
  - Metrorrhagia [Recovered/Resolved]
  - Hormone level abnormal [Unknown]
  - Transaminases abnormal [Recovered/Resolved]
  - Lymphadenitis [Unknown]
  - Internal haemorrhage [Fatal]
  - Menorrhagia [Recovered/Resolved]
  - Anaemia [Fatal]
  - Abdominal pain upper [Fatal]

NARRATIVE: CASE EVENT DATE: 20160704
